FAERS Safety Report 4698393-3 (Version None)
Quarter: 2005Q2

REPORT INFORMATION
  Report Type: 
  Country: None (occurrence: None)
  Receive Date: 20050621
  Receipt Date: 20050617
  Transmission Date: 20051028
  Serious: Yes (Life-Threatening, Hospitalization)
  Sender: FDA-Public Use
  Company Number: 05GER0133

PATIENT
  Age: 70 Year
  Sex: Female

DRUGS (1)
  1. AGGRASTAT [Suspect]
     Dates: start: 20050613, end: 20050613

REACTIONS (1)
  - THROMBOCYTOPENIA [None]
